FAERS Safety Report 13543635 (Version 8)
Quarter: 2022Q4

REPORT INFORMATION
  Report Type: Report from Study
  Country: KR (occurrence: None)
  Receive Date: 20170515
  Receipt Date: 20221102
  Transmission Date: 20230113
  Serious: Yes (Death, Hospitalization)
  Sender: FDA-Public Use
  Company Number: KR-ROCHE-1933494

PATIENT
  Age: 70 Year
  Sex: Male
  Weight: 60 kg

DRUGS (10)
  1. TRASTUZUMAB [Suspect]
     Active Substance: TRASTUZUMAB
     Indication: HER2 positive gastric cancer
     Dosage: MOST RECENT DOSE (399MG) PRIOR TO SAE: 27/APR/2017.?DAY 1 IN 3 WEEKLY SCHEDULE
     Route: 042
     Dates: start: 20161121
  2. CAPECITABINE [Suspect]
     Active Substance: CAPECITABINE
     Indication: HER2 positive gastric cancer
     Dosage: MOST RECENT DOSE (1300MG) PRIOR TO SAE: 27/APR/2017.?DAY 1-14 IN 3 WEEKLY SCHEDULE (1000 MG/M2 TWICE
     Route: 048
     Dates: start: 20161121
  3. CISPLATIN [Suspect]
     Active Substance: CISPLATIN
     Indication: HER2 positive gastric cancer
     Dosage: MOST RECENT DOSE (107MG) PRIOR TO SAE: 27/APR/2017.?DAY 1 IN 3 WEEKLY SCHEDULE
     Route: 042
     Dates: start: 20161121
  4. LESCOL [Concomitant]
     Active Substance: FLUVASTATIN SODIUM
     Indication: Myocardial infarction
     Route: 048
     Dates: start: 2016, end: 20170501
  5. PLAVIX [Concomitant]
     Active Substance: CLOPIDOGREL BISULFATE
     Indication: Myocardial infarction
     Route: 048
     Dates: start: 2016, end: 20170501
  6. ANGIBID [Concomitant]
     Indication: Myocardial infarction
     Route: 048
     Dates: start: 2016, end: 20170501
  7. ASPIRIN [Concomitant]
     Active Substance: ASPIRIN
     Indication: Myocardial infarction
     Route: 048
     Dates: start: 2016, end: 20170501
  8. BUSPAR [Concomitant]
     Active Substance: BUSPIRONE HYDROCHLORIDE
     Indication: Myocardial infarction
     Route: 048
     Dates: start: 2016, end: 20170501
  9. DILTIAZEM HYDROCHLORIDE [Concomitant]
     Active Substance: DILTIAZEM HYDROCHLORIDE
     Indication: Myocardial infarction
     Route: 048
     Dates: start: 2016, end: 20170501
  10. MEGESTROL [Concomitant]
     Active Substance: MEGESTROL
     Indication: Prophylaxis
     Route: 048
     Dates: start: 20160316, end: 20170501

REACTIONS (1)
  - Febrile neutropenia [Fatal]

NARRATIVE: CASE EVENT DATE: 20170501
